FAERS Safety Report 7358204-4 (Version None)
Quarter: 2011Q1

REPORT INFORMATION
  Report Type: 
  Country: None (occurrence: None)
  Receive Date: 20110317
  Receipt Date: 20110307
  Transmission Date: 20110831
  Serious: Yes (Other)
  Sender: FDA-Public Use
  Company Number: JP-ROCHE-753045

PATIENT
  Age: 34 Year
  Sex: Female
  Weight: 59 kg

DRUGS (12)
  1. AVASTIN [Suspect]
     Route: 041
     Dates: start: 20100701, end: 20101001
  2. 5-FU [Concomitant]
     Route: 041
     Dates: start: 20091201, end: 20100401
  3. ELPLAT [Concomitant]
     Route: 041
     Dates: start: 20101119, end: 20101119
  4. LEVOFOLINATE [Concomitant]
     Route: 041
     Dates: start: 20091201, end: 20100401
  5. LEVOFOLINATE [Concomitant]
     Route: 041
     Dates: start: 20100701, end: 20101001
  6. ELPLAT [Concomitant]
     Route: 041
     Dates: start: 20091201, end: 20100401
  7. ELPLAT [Concomitant]
     Route: 041
     Dates: start: 20101029, end: 20101029
  8. ELPLAT [Concomitant]
     Route: 041
     Dates: start: 20100701, end: 20101001
  9. ELPLAT [Concomitant]
     Route: 041
     Dates: start: 20101008, end: 20101008
  10. 5-FU [Concomitant]
     Route: 041
     Dates: start: 20100701, end: 20101001
  11. AVASTIN [Suspect]
     Indication: COLON CANCER METASTATIC
     Route: 041
     Dates: start: 20091201, end: 20100401
  12. XELODA [Suspect]
     Indication: COLON CANCER METASTATIC
     Route: 048
     Dates: start: 20101008, end: 20101224

REACTIONS (2)
  - NEUTROPHIL COUNT DECREASED [None]
  - AMENORRHOEA [None]
